FAERS Safety Report 14164123 (Version 1)
Quarter: 2017Q4

REPORT INFORMATION
  Report Type: Spontaneous
  Country: IR (occurrence: IR)
  Receive Date: 20171107
  Receipt Date: 20171107
  Transmission Date: 20180321
  Serious: No
  Sender: FDA-Public Use
  Company Number: IR-LUPIN PHARMACEUTICALS INC.-2017-00539

PATIENT
  Age: 49 Year
  Sex: Male

DRUGS (12)
  1. CARVEDILOL. [Concomitant]
     Active Substance: CARVEDILOL
     Indication: ARRHYTHMOGENIC RIGHT VENTRICULAR DYSPLASIA
     Dosage: UNK UNK,UNK,UNKNOWN
     Route: 065
  2. SPIRONOLACTONE. [Concomitant]
     Active Substance: SPIRONOLACTONE
     Indication: ARRHYTHMOGENIC RIGHT VENTRICULAR DYSPLASIA
     Dosage: UNK UNK,UNK,UNKNOWN
     Route: 065
  3. LISINOPRIL. [Suspect]
     Active Substance: LISINOPRIL
     Indication: ARRHYTHMOGENIC RIGHT VENTRICULAR DYSPLASIA
     Dosage: UNK UNK,UNK,UNKNOWN
     Route: 065
  4. FOLIC ACID. [Concomitant]
     Active Substance: FOLIC ACID
     Indication: ARRHYTHMOGENIC RIGHT VENTRICULAR DYSPLASIA
     Dosage: UNK UNK,UNK,UNKNOWN
     Route: 065
  5. SPIRONOLACTONE. [Concomitant]
     Active Substance: SPIRONOLACTONE
     Indication: CARDIOMYOPATHY
  6. FUROSEMIDE. [Concomitant]
     Active Substance: FUROSEMIDE
     Indication: ARRHYTHMOGENIC RIGHT VENTRICULAR DYSPLASIA
     Dosage: UNK UNK,UNK,UNKNOWN
     Route: 065
  7. FUROSEMIDE. [Concomitant]
     Active Substance: FUROSEMIDE
     Indication: CARDIOMYOPATHY
  8. LISINOPRIL. [Suspect]
     Active Substance: LISINOPRIL
     Indication: CARDIOMYOPATHY
  9. CARVEDILOL. [Concomitant]
     Active Substance: CARVEDILOL
     Indication: CARDIOMYOPATHY
  10. FOLIC ACID. [Concomitant]
     Active Substance: FOLIC ACID
     Indication: CARDIOMYOPATHY
  11. SILDENAFIL. [Concomitant]
     Active Substance: SILDENAFIL
     Indication: CARDIOMYOPATHY
  12. SILDENAFIL. [Concomitant]
     Active Substance: SILDENAFIL
     Indication: ARRHYTHMOGENIC RIGHT VENTRICULAR DYSPLASIA
     Dosage: UNK UNK,UNK,UNKNOWN
     Route: 065

REACTIONS (1)
  - Hypotension [Unknown]
